FAERS Safety Report 7796785-7 (Version None)
Quarter: 2011Q4

REPORT INFORMATION
  Report Type: 
  Country: None (occurrence: None)
  Receive Date: 20111005
  Receipt Date: 20110926
  Transmission Date: 20120403
  Serious: Yes (Other)
  Sender: FDA-Public Use
  Company Number: US-BAYER-2011-062174

PATIENT
  Age: 33 Year
  Sex: Female
  Weight: 68.934 kg

DRUGS (2)
  1. MIRENA [Suspect]
     Dosage: 20 MCG/24HR, CONT
     Dates: start: 20110608, end: 20110601
  2. MIRENA [Suspect]
     Indication: CONTRACEPTION
     Dosage: 20 MCG/24HR, CONT
     Dates: start: 20110617, end: 20110624

REACTIONS (4)
  - UTERINE PERFORATION [None]
  - ABDOMINAL PAIN [None]
  - DEVICE EXPULSION [None]
  - NAUSEA [None]
